FAERS Safety Report 6961756-7 (Version None)
Quarter: 2010Q3

REPORT INFORMATION
  Report Type: 
  Country: None (occurrence: None)
  Receive Date: 20100901
  Receipt Date: 20100820
  Transmission Date: 20110219
  Serious: Yes (Other)
  Sender: FDA-Public Use
  Company Number: BR-GENENTECH-303245

PATIENT
  Sex: Female
  Weight: 60 kg

DRUGS (10)
  1. RITUXIMAB [Suspect]
     Indication: RHEUMATOID ARTHRITIS
     Dosage: 1000 MG/ML, UNK
     Route: 042
     Dates: start: 20100115, end: 20100203
  2. MORPHINE [Suspect]
     Indication: PRODUCT USED FOR UNKNOWN INDICATION
     Dosage: UNK
     Dates: start: 20100604
  3. PREDNISONE [Concomitant]
     Indication: PRODUCT USED FOR UNKNOWN INDICATION
     Dosage: 15 MG, UNK
  4. DICLOFENAC SODIUM [Concomitant]
     Indication: PRODUCT USED FOR UNKNOWN INDICATION
     Dosage: 150 MG, UNK
  5. CALCIUM [Concomitant]
     Indication: PRODUCT USED FOR UNKNOWN INDICATION
     Dosage: 500 MG, UNK
  6. OMEPRAZOLE [Concomitant]
     Indication: PRODUCT USED FOR UNKNOWN INDICATION
  7. METHOTREXATE [Concomitant]
     Indication: PRODUCT USED FOR UNKNOWN INDICATION
  8. SIMVASTATIN [Concomitant]
     Indication: BLOOD CHOLESTEROL
  9. ASPIRIN [Concomitant]
     Indication: PRODUCT USED FOR UNKNOWN INDICATION
  10. MACRODANTIN [Concomitant]
     Indication: BLADDER DISORDER

REACTIONS (14)
  - ARTHROPATHY [None]
  - BACTERIAL TEST POSITIVE [None]
  - BONE CYST [None]
  - GINGIVAL PAIN [None]
  - HEADACHE [None]
  - IMMUNODEFICIENCY [None]
  - NAUSEA [None]
  - NONSPECIFIC REACTION [None]
  - PAIN [None]
  - STAPHYLOCOCCAL OSTEOMYELITIS [None]
  - TOOTH DISCOLOURATION [None]
  - TOOTHACHE [None]
  - VOMITING [None]
  - WEIGHT INCREASED [None]
